FAERS Safety Report 17497834 (Version 1)
Quarter: 2020Q1

REPORT INFORMATION
  Report Type: Spontaneous
  Country: GB (occurrence: GB)
  Receive Date: 20200304
  Receipt Date: 20200304
  Transmission Date: 20200409
  Serious: Yes (Hospitalization, Other)
  Sender: FDA-Public Use
  Company Number: GB-MYLANLABS-2020M1023188

PATIENT
  Age: 52 Year
  Sex: Male

DRUGS (2)
  1. CLOZARIL [Suspect]
     Active Substance: CLOZAPINE
     Indication: SCHIZOPHRENIA
     Dosage: UNK
     Route: 048
     Dates: start: 20010701
  2. CLOZARIL [Suspect]
     Active Substance: CLOZAPINE
     Dosage: 425 B.D.S , QD
     Route: 048
     Dates: start: 202002

REACTIONS (4)
  - Agitation [Unknown]
  - Product dose omission [Recovered/Resolved]
  - Urinary tract infection [Recovering/Resolving]
  - Infectious pleural effusion [Unknown]

NARRATIVE: CASE EVENT DATE: 202002
